FAERS Safety Report 5273795-5 (Version None)
Quarter: 2007Q1

REPORT INFORMATION
  Report Type: 
  Country: None (occurrence: None)
  Receive Date: 20061219
  Receipt Date: 20060906
  Transmission Date: 20070707
  Serious: Yes (Hospitalization)
  Sender: FDA-Public Use
  Company Number: US-JNJFOC-20060901491

PATIENT
  Age: 28 Year
  Sex: Female
  Weight: 57.1532 kg

DRUGS (2)
  1. ORTHO EVRA [Suspect]
     Indication: CONTRACEPTION
     Dosage: TRANSDERMAL
     Route: 062
     Dates: start: 20041001, end: 20050115
  2. MULTIVITAMIN [Concomitant]

REACTIONS (4)
  - ANTINUCLEAR ANTIBODY POSITIVE [None]
  - GASTROENTERITIS [None]
  - OESOPHAGITIS [None]
  - PELVIC VENOUS THROMBOSIS [None]
